FAERS Safety Report 4666088-8 (Version None)
Quarter: 2005Q2

REPORT INFORMATION
  Report Type: 
  Country: None (occurrence: None)
  Receive Date: 20050519
  Receipt Date: 20041222
  Transmission Date: 20051028
  Serious: Yes (Death)
  Sender: FDA-Public Use
  Company Number: 4846

PATIENT
  Age: 72 Year
  Sex: Male

DRUGS (9)
  1. HYCAMTIN [Suspect]
     Dosage: 1MGM2 PER DAY
     Route: 042
     Dates: start: 20041129, end: 20041202
  2. RADIOTHERAPY [Concomitant]
     Dates: start: 20040902, end: 20041013
  3. CHEMOTHERAPY [Concomitant]
     Dates: start: 20040901, end: 20041008
  4. LANSOPRAZOLE [Concomitant]
     Indication: DUODENAL ULCER
     Dosage: 30MG PER DAY
     Route: 048
     Dates: start: 20041006, end: 20041214
  5. NABUMETONE [Concomitant]
     Indication: CANCER PAIN
     Dosage: 800MG PER DAY
     Route: 048
     Dates: start: 20041125, end: 20041212
  6. RAMOSETRON HYDROCHLORIDE [Concomitant]
     Dosage: .3MG PER DAY
     Route: 042
     Dates: start: 20041129, end: 20041202
  7. PREDNISOLONE [Concomitant]
     Route: 048
     Dates: start: 20041118, end: 20041210
  8. OXYCODONE HCL [Concomitant]
     Route: 048
     Dates: start: 20041209, end: 20041213
  9. CEFPIROME SULFATE [Concomitant]
     Dosage: 2MG PER DAY
     Route: 042
     Dates: start: 20041207, end: 20041210

REACTIONS (11)
  - ACUTE RESPIRATORY FAILURE [None]
  - CONDITION AGGRAVATED [None]
  - DEPRESSED LEVEL OF CONSCIOUSNESS [None]
  - DISEASE PROGRESSION [None]
  - DYSPNOEA EXACERBATED [None]
  - HEPATIC FUNCTION ABNORMAL [None]
  - INTERSTITIAL LUNG DISEASE [None]
  - PLATELET COUNT DECREASED [None]
  - PLEURAL EFFUSION [None]
  - PNEUMONIA [None]
  - PYREXIA [None]
